FAERS Safety Report 7280814-3 (Version None)
Quarter: 2011Q1

REPORT INFORMATION
  Report Type: 
  Country: None (occurrence: None)
  Receive Date: 20110208
  Receipt Date: 20110202
  Transmission Date: 20110831
  Serious: Yes (Other)
  Sender: FDA-Public Use
  Company Number: US-BRISTOL-MYERS SQUIBB COMPANY-15524895

PATIENT

DRUGS (1)
  1. ABILIFY [Suspect]

REACTIONS (2)
  - HYPOMANIA [None]
  - DEPRESSION [None]
